FAERS Safety Report 23362755 (Version 1)
Quarter: 2024Q1

REPORT INFORMATION
  Report Type: Spontaneous
  Country: US (occurrence: None)
  Receive Date: 20240103
  Receipt Date: 20240103
  Transmission Date: 20240409
  Serious: Yes (Hospitalization)
  Sender: FDA-Public Use
  Company Number: None

PATIENT
  Sex: Female

DRUGS (1)
  1. CAPECITABINE [Suspect]
     Active Substance: CAPECITABINE
     Indication: Gallbladder cancer
     Route: 048
     Dates: start: 202311

REACTIONS (4)
  - Dehydration [None]
  - Diarrhoea [None]
  - Palmar-plantar erythrodysaesthesia syndrome [None]
  - COVID-19 [None]
